FAERS Safety Report 5102269-7 (Version None)
Quarter: 2006Q3

REPORT INFORMATION
  Report Type: 
  Country: None (occurrence: None)
  Receive Date: 20060907
  Receipt Date: 20060823
  Transmission Date: 20061208
  Serious: Yes (Hospitalization)
  Sender: FDA-Public Use
  Company Number: 2006-BP-09788RO

PATIENT
  Age: 19 Year
  Sex: Male

DRUGS (4)
  1. LITHIUM CARBONATE [Suspect]
     Indication: BIPOLAR DISORDER
     Dosage: TITRATED TO 600 MG BID , PO
     Route: 048
  2. ARIPIPRAZOLE (ARIPIPRAZOLE) [Suspect]
     Indication: BIPOLAR DISORDER
     Dosage: 5 TO 30 MG/DAY, PO
     Route: 048
  3. VALPROIC ACID [Suspect]
     Indication: BIPOLAR DISORDER
  4. SERTRALINE [Suspect]
     Indication: BIPOLAR DISORDER

REACTIONS (9)
  - AGGRESSION [None]
  - AGITATION [None]
  - DELUSION OF GRANDEUR [None]
  - MOOD SWINGS [None]
  - NEUROLEPTIC MALIGNANT SYNDROME [None]
  - PARANOIA [None]
  - THERAPEUTIC RESPONSE DECREASED [None]
  - TREATMENT NONCOMPLIANCE [None]
  - WHITE BLOOD CELL COUNT INCREASED [None]
